FAERS Safety Report 10960583 (Version 2)
Quarter: 2015Q2

REPORT INFORMATION
  Report Type: Report from Study
  Country: CA (occurrence: CA)
  Receive Date: 20150327
  Receipt Date: 20150406
  Transmission Date: 20150821
  Serious: Yes (Death, Hospitalization)
  Sender: FDA-Public Use
  Company Number: CA-AMGEN-CANSL2015028173

PATIENT
  Age: 87 Year
  Sex: Female
  Weight: 40.82 kg

DRUGS (1)
  1. NPLATE [Suspect]
     Active Substance: ROMIPLOSTIM
     Indication: IMMUNE THROMBOCYTOPENIC PURPURA
     Dosage: 500 UNKNOWN, QWK
     Route: 058
     Dates: start: 20130515

REACTIONS (3)
  - Eating disorder [Unknown]
  - Condition aggravated [Unknown]
  - Pneumonia [Fatal]

NARRATIVE: CASE EVENT DATE: 201503
